FAERS Safety Report 4429123-8 (Version None)
Quarter: 2004Q3

REPORT INFORMATION
  Report Type: 
  Country: None (occurrence: None)
  Receive Date: 20040726
  Receipt Date: 20040319
  Transmission Date: 20050211
  Serious: No
  Sender: FDA-Public Use
  Company Number: USA040361477

PATIENT
  Age: 41 Year
  Sex: Female
  Weight: 63 kg

DRUGS (3)
  1. FORTEO [Suspect]
     Indication: OSTEOPENIA
     Dosage: 20 UG/DAY
     Dates: start: 20040219
  2. IBUPROFEN [Concomitant]
  3. OSCAL 500-D [Concomitant]

REACTIONS (2)
  - BLOOD CHOLESTEROL INCREASED [None]
  - WEIGHT LOSS POOR [None]
